FAERS Safety Report 23445185 (Version 3)
Quarter: 2024Q1

REPORT INFORMATION
  Report Type: Spontaneous
  Country: JP (occurrence: JP)
  Receive Date: 20240125
  Receipt Date: 20240322
  Transmission Date: 20240410
  Serious: Yes (Death, Other)
  Sender: FDA-Public Use
  Company Number: JP-GSK-JP2023JPN163313

PATIENT

DRUGS (10)
  1. DAPRODUSTAT [Suspect]
     Active Substance: DAPRODUSTAT
     Indication: Nephrogenic anaemia
     Dosage: 2 MG
     Route: 048
     Dates: start: 20231121, end: 20231201
  2. TOLVAPTAN [Concomitant]
     Active Substance: TOLVAPTAN
     Indication: Cardiac failure chronic
     Dosage: 15 MG, 1D, AFTER BREAKFAST
     Dates: start: 20230927, end: 20231201
  3. ENTRESTO [Concomitant]
     Active Substance: SACUBITRIL\VALSARTAN
     Indication: Cardiac failure chronic
     Dosage: 200 MG, BID, AFTER BREAKFAST AND DINNER
     Dates: start: 20230927, end: 20231201
  4. CARVEDILOL [Concomitant]
     Active Substance: CARVEDILOL
     Indication: Cardiac failure chronic
     Dosage: 1.25 MG, BID, AFTER BREAKFAST AND DINNER
     Dates: end: 20231201
  5. TRICHLORMETHIAZIDE [Concomitant]
     Active Substance: TRICHLORMETHIAZIDE
     Indication: Cardiac failure chronic
     Dosage: 2 MG, 1D, AFTER BREAKFAST
     Dates: end: 20231201
  6. AMLODIPINE BESYLATE [Concomitant]
     Active Substance: AMLODIPINE BESYLATE
     Indication: Cardiac failure chronic
     Dosage: 10 MG, 1D, AFTER BREAKFAST
     Dates: end: 20231201
  7. Nifedipine sustained release tablets (i) [Concomitant]
     Indication: Cardiac failure chronic
     Dosage: 20 MG, 1D, AFTER BREAKFAST
  8. AZOSEMIDE [Concomitant]
     Active Substance: AZOSEMIDE
     Indication: Cardiac failure chronic
     Dosage: 60 MG, 1D, AFTER BREAKFAST
     Dates: end: 20231201
  9. VONOPRAZAN FUMARATE [Concomitant]
     Active Substance: VONOPRAZAN FUMARATE
     Dosage: 10 MG, 1D, AFTER BREAKFAST
     Dates: end: 20231201
  10. ADALAT CC [Concomitant]
     Active Substance: NIFEDIPINE
     Indication: Cardiac failure chronic
     Dosage: 60 MG, 1D, AFTER BREAKFAST

REACTIONS (3)
  - Cardiac failure [Fatal]
  - Product use issue [Unknown]
  - Off label use [Unknown]
